FAERS Safety Report 18000774 (Version 1)
Quarter: 2020Q3

REPORT INFORMATION
  Report Type: Spontaneous
  Country: CN (occurrence: CN)
  Receive Date: 20200709
  Receipt Date: 20200709
  Transmission Date: 20201103
  Serious: Yes (Hospitalization)
  Sender: FDA-Public Use
  Company Number: CN-009507513-2007CHN001886

PATIENT
  Age: 62 Year
  Sex: Female
  Weight: 53.5 kg

DRUGS (5)
  1. BEVACIZUMAB. [Suspect]
     Active Substance: BEVACIZUMAB
     Dosage: UNK
     Dates: start: 20200605
  2. AN KE [Concomitant]
     Dosage: 400 MILLIGRAM, QD
     Route: 042
     Dates: start: 20200605
  3. SODIUM CHLORIDE. [Suspect]
     Active Substance: SODIUM CHLORIDE
     Dosage: 100 MILLILITER
  4. AN KE [Concomitant]
     Dosage: 400 MILLIGRAM, QD
     Route: 042
  5. KEYTRUDA [Suspect]
     Active Substance: PEMBROLIZUMAB
     Indication: OVARIAN CANCER
     Dosage: 200 MILLIGRAM, QD
     Dates: start: 20200605, end: 20200605

REACTIONS (3)
  - Autoimmune dermatitis [Recovering/Resolving]
  - Lip ulceration [Unknown]
  - Rash pruritic [Recovering/Resolving]

NARRATIVE: CASE EVENT DATE: 20200622
